FAERS Safety Report 4887769-7 (Version None)
Quarter: 2005Q4

REPORT INFORMATION
  Report Type: 
  Country: None (occurrence: None)
  Receive Date: 20051221
  Receipt Date: 20051117
  Transmission Date: 20060501
  Serious: No
  Sender: FDA-Public Use
  Company Number: US-YAMANOUCHI-YPA20050599

PATIENT
  Age: 78 Year
  Sex: Female

DRUGS (17)
  1. VESICARE [Suspect]
     Indication: BLADDER DISORDER
     Dosage: 5 MG, PO
     Route: 048
     Dates: start: 20050905
  2. BLOOD PRESSURE MEDICATION [Suspect]
     Indication: BLOOD PRESSURE
  3. MYLANTA [Concomitant]
  4. DIOVAN HCT [Concomitant]
  5. ZOCOR [Concomitant]
  6. PREVACID [Concomitant]
  7. FOSAMAX [Concomitant]
  8. TRILEPTAL [Concomitant]
  9. ADVAIR DISKUS 100/50 [Concomitant]
  10. SINGULAIR [Concomitant]
  11. ASCORBIC ACID [Concomitant]
  12. CALCIUM GLUCONATE [Concomitant]
  13. OMEGA 3 [Concomitant]
  14. COSAMIN DS [Concomitant]
  15. MULTIVITAMIN [Concomitant]
  16. STOOL SOFTENER [Concomitant]
  17. VITAMIN B-12 [Concomitant]

REACTIONS (2)
  - COUGH [None]
  - DYSPEPSIA [None]
